FAERS Safety Report 10689808 (Version 3)
Quarter: 2015Q1

REPORT INFORMATION
  Report Type: Spontaneous
  Country: US (occurrence: US)
  Receive Date: 20150105
  Receipt Date: 20150218
  Transmission Date: 20150720
  Serious: No
  Sender: FDA-Public Use
  Company Number: US-009507513-1501USA000325

PATIENT
  Age: 19 Year
  Sex: Female
  Weight: 87.5 kg

DRUGS (1)
  1. NEXPLANON [Suspect]
     Active Substance: ETONOGESTREL
     Indication: CONTRACEPTION
     Dosage: 1 STANDARD PACKAGE PREFLAPP OF 1, FREQUENCY REPORTED AS 1 ROD/ ONCE EVERY THREE YEARS, IN ARM
     Route: 059
     Dates: start: 20130122

REACTIONS (2)
  - Hypomenorrhoea [Unknown]
  - Device breakage [Not Recovered/Not Resolved]

NARRATIVE: CASE EVENT DATE: 20130828
